FAERS Safety Report 4842115-X (Version None)
Quarter: 2005Q4

REPORT INFORMATION
  Report Type: 
  Country: None (occurrence: None)
  Receive Date: 20051130
  Receipt Date: 20051004
  Transmission Date: 20060501
  Serious: Yes (Hospitalization, Disabling)
  Sender: FDA-Public Use
  Company Number: US-MERCK-0510USA02377

PATIENT
  Age: 61 Year
  Sex: Male
  Weight: 102 kg

DRUGS (4)
  1. VIOXX [Suspect]
     Indication: ARTHRITIS
     Route: 048
  2. AMARYL [Concomitant]
     Route: 065
  3. SYNTHROID [Concomitant]
     Route: 065
  4. DIOVAN [Concomitant]
     Route: 065

REACTIONS (7)
  - BACK DISORDER [None]
  - CEREBROVASCULAR ACCIDENT [None]
  - CHEST PAIN [None]
  - DYSPNOEA [None]
  - GASTRIC DISORDER [None]
  - PNEUMONIA [None]
  - ROTATOR CUFF SYNDROME [None]
